FAERS Safety Report 6831868-7 (Version None)
Quarter: 2010Q3

REPORT INFORMATION
  Report Type: 
  Country: None (occurrence: None)
  Receive Date: 20100712
  Receipt Date: 20100702
  Transmission Date: 20110219
  Serious: Yes (Hospitalization)
  Sender: FDA-Public Use
  Company Number: BR-ABBOTT-10P-020-0622052-00

PATIENT
  Sex: Female
  Weight: 71 kg

DRUGS (29)
  1. HUMIRA [Suspect]
     Indication: RHEUMATOID ARTHRITIS
     Route: 058
     Dates: start: 20090101
  2. HYDROXYCHLOROQUINE [Concomitant]
     Indication: RHEUMATOID ARTHRITIS
     Route: 058
  3. PREDNISONE [Concomitant]
     Indication: RHEUMATOID ARTHRITIS
     Route: 048
  4. MELOXICAM [Concomitant]
     Indication: RHEUMATOID ARTHRITIS
     Route: 048
  5. MELOXICAM [Concomitant]
     Indication: PAIN
  6. DOLAMIN [Concomitant]
     Indication: ARTHRALGIA
     Route: 048
  7. METHOTREXATE [Concomitant]
     Indication: RHEUMATOID ARTHRITIS
     Route: 048
  8. FOLIC ACID [Concomitant]
     Indication: ANAEMIA PROPHYLAXIS
     Route: 048
  9. ACETAMINOPHEN [Concomitant]
     Indication: PAIN
     Route: 048
  10. ACETAMINOPHEN [Concomitant]
     Indication: BACK PAIN
  11. FUROSEMIDE [Concomitant]
     Indication: CARDIAC DISORDER
     Route: 048
  12. ALDACTONE [Concomitant]
     Indication: OEDEMA
     Route: 048
  13. ICTUS [Concomitant]
     Indication: CARDIAC DISORDER
     Route: 048
  14. OMEPRAZOLE [Concomitant]
     Indication: GASTRIC DISORDER
     Route: 048
  15. HYDROCHLOROTHIAZIDE [Concomitant]
     Indication: CARDIAC DISORDER
     Route: 048
  16. LOSARTAN POTASSIUM [Concomitant]
     Indication: CARDIAC DISORDER
     Route: 048
     Dates: start: 20100112
  17. CARVEDILAT [Concomitant]
     Indication: CARDIAC DISORDER
     Route: 048
  18. DORFLEX [Concomitant]
     Indication: BACK PAIN
     Route: 048
  19. RIVOTRIL [Concomitant]
     Indication: INSOMNIA
     Dosage: 1 OR 1/2 TABLET DAILY
     Route: 048
     Dates: start: 20060101
  20. FLUOXETINE HCL [Concomitant]
     Indication: ANTIDEPRESSANT THERAPY
     Route: 048
  21. LISTRIL [Concomitant]
     Indication: CARDIAC DISORDER
     Route: 048
     Dates: start: 20020101, end: 20100101
  22. CHLOROQUINE PHOSPHATE [Concomitant]
     Indication: GASTRIC DISORDER
     Route: 048
     Dates: start: 20000101
  23. CHLOROQUINE PHOSPHATE [Concomitant]
     Indication: RHEUMATOID ARTHRITIS
  24. ECATOR [Concomitant]
     Indication: CARDIAC DISORDER
     Route: 048
  25. ECATOR [Concomitant]
     Indication: PROPHYLAXIS
  26. ECATOR [Concomitant]
     Indication: OEDEMA
  27. SERTRALINE HCL [Concomitant]
     Indication: ANTIDEPRESSANT THERAPY
     Route: 048
  28. HISTAMINE [Concomitant]
     Indication: URTICARIA
     Route: 048
  29. PREDNISONE [Concomitant]
     Dates: start: 20000101

REACTIONS (32)
  - ABDOMINAL DISTENSION [None]
  - ALOPECIA [None]
  - ARTHRALGIA [None]
  - ASTHENIA [None]
  - BACK PAIN [None]
  - BONE PAIN [None]
  - COELIAC DISEASE [None]
  - COUGH [None]
  - CYSTITIS [None]
  - DIVERTICULUM [None]
  - DRUG INEFFECTIVE [None]
  - DYSURIA [None]
  - ENTERITIS INFECTIOUS [None]
  - FATIGUE [None]
  - HAIR GROWTH ABNORMAL [None]
  - HIATUS HERNIA [None]
  - INFLAMMATION [None]
  - INGROWING NAIL [None]
  - INSOMNIA [None]
  - KERATOCONJUNCTIVITIS SICCA [None]
  - LOCAL SWELLING [None]
  - LOCALISED INFECTION [None]
  - NAUSEA [None]
  - PAIN [None]
  - PAIN IN EXTREMITY [None]
  - SKIN LESION [None]
  - SPINAL DEFORMITY [None]
  - THROAT TIGHTNESS [None]
  - URINARY TRACT INFECTION [None]
  - VISUAL IMPAIRMENT [None]
  - WHEEZING [None]
  - WOUND [None]
